FAERS Safety Report 8013230-7 (Version None)
Quarter: 2011Q4

REPORT INFORMATION
  Report Type: 
  Country: None (occurrence: None)
  Receive Date: 20111229
  Receipt Date: 20111229
  Transmission Date: 20120403
  Serious: Yes (Death)
  Sender: FDA-Public Use
  Company Number: None

PATIENT
  Age: 82 Year
  Sex: Female
  Weight: 65 kg

DRUGS (5)
  1. NAMENDA [Concomitant]
     Route: 048
  2. ASPIRIN [Concomitant]
     Route: 048
  3. CYMBALTA [Suspect]
     Indication: DEPRESSION
     Dates: start: 20111001, end: 20111211
  4. TRAMADOL HCL [Concomitant]
     Route: 048
  5. ENALAPRIL MALEATE [Concomitant]
     Route: 048

REACTIONS (6)
  - DELIRIUM [None]
  - ELECTROLYTE IMBALANCE [None]
  - PYREXIA [None]
  - MUSCLE RIGIDITY [None]
  - CONFUSIONAL STATE [None]
  - COMA [None]
